FAERS Safety Report 15539917 (Version 11)
Quarter: 2019Q2

REPORT INFORMATION
  Report Type: Report from Study
  Country: None (occurrence: FR)
  Receive Date: 20181023
  Receipt Date: 20190625
  Transmission Date: 20190711
  Serious: Yes (Death, Other)
  Sender: FDA-Public Use
  Company Number: FR-ABBVIE-18K-056-2522084-00

PATIENT
  Age: 73 Year
  Sex: Male
  Weight: 74 kg

DRUGS (17)
  1. VENCLYXTO [Suspect]
     Active Substance: VENETOCLAX
     Route: 048
     Dates: start: 20181010, end: 20181019
  2. BUDESONIDE. [Concomitant]
     Active Substance: BUDESONIDE
     Indication: ASTHMA
     Dates: start: 20180907, end: 20180927
  3. VENCLYXTO [Suspect]
     Active Substance: VENETOCLAX
     Indication: CHRONIC LYMPHOCYTIC LEUKAEMIA
     Route: 048
     Dates: start: 20180911, end: 20180918
  4. AMLODIPINE [Concomitant]
     Active Substance: AMLODIPINE BESYLATE
     Indication: HYPERTENSION
     Dates: start: 20180908, end: 20181011
  5. VENCLYXTO [Suspect]
     Active Substance: VENETOCLAX
     Route: 048
     Dates: start: 20180919, end: 20180925
  6. ALLOPURINOL. [Concomitant]
     Active Substance: ALLOPURINOL
     Indication: HYPERURICAEMIA
     Dates: start: 20180907, end: 20181009
  7. FOLINIC ACID [Concomitant]
     Active Substance: LEUCOVORIN
     Indication: HAEMATOTOXICITY
     Dates: start: 20180923, end: 20181011
  8. VENCLYXTO [Suspect]
     Active Substance: VENETOCLAX
     Route: 048
  9. GANFORT [Concomitant]
     Active Substance: BIMATOPROST\TIMOLOL
     Indication: GLAUCOMA
     Dates: start: 20180908, end: 20181011
  10. VALACICLOVIR [Concomitant]
     Active Substance: VALACYCLOVIR HYDROCHLORIDE
     Indication: ANTIVIRAL TREATMENT
     Dates: start: 20180908
  11. BACTRIM [Suspect]
     Active Substance: SULFAMETHOXAZOLE\TRIMETHOPRIM
     Indication: INFECTION
     Route: 065
     Dates: start: 20180923
  12. CIPROFLOXACINE [Suspect]
     Active Substance: CIPROFLOXACIN
     Indication: INFECTION
     Route: 065
     Dates: start: 20180921, end: 20180921
  13. CEFTAZIDIME. [Concomitant]
     Active Substance: CEFTAZIDIME
     Indication: INFECTION
     Dates: start: 20180921, end: 20180922
  14. ENOXAPARIN SODIUM. [Concomitant]
     Active Substance: ENOXAPARIN SODIUM
     Indication: ANTICOAGULANT THERAPY
     Dates: start: 20180922, end: 20181011
  15. VENCLYXTO [Suspect]
     Active Substance: VENETOCLAX
     Route: 048
     Dates: start: 20181003, end: 20181009
  16. IBRUTINIB [Suspect]
     Active Substance: IBRUTINIB
     Indication: CHRONIC LYMPHOCYTIC LEUKAEMIA
     Route: 065
     Dates: start: 20170806, end: 20181009
  17. VENCLYXTO [Suspect]
     Active Substance: VENETOCLAX
     Route: 048
     Dates: start: 20180926, end: 20181002

REACTIONS (19)
  - Hyperkalaemia [Recovered/Resolved]
  - Hyperkalaemia [Not Recovered/Not Resolved]
  - Infection [Unknown]
  - Haematotoxicity [Unknown]
  - Death [Fatal]
  - Hypertensive crisis [Recovered/Resolved]
  - Oedema peripheral [Not Recovered/Not Resolved]
  - Respiratory distress [Recovered/Resolved]
  - Splenomegaly [Unknown]
  - Rhinitis [Unknown]
  - Hypertension [Unknown]
  - Pseudomonas infection [Recovered/Resolved]
  - Blood potassium increased [Recovered/Resolved]
  - Hypogammaglobulinaemia [Unknown]
  - Off label use [Recovered/Resolved]
  - Off label use [Unknown]
  - Hypocalcaemia [Not Recovered/Not Resolved]
  - Respiratory distress [Recovered/Resolved with Sequelae]
  - Diarrhoea [Recovered/Resolved]

NARRATIVE: CASE EVENT DATE: 201809
